FAERS Safety Report 9722252 (Version 2)
Quarter: 2014Q1

REPORT INFORMATION
  Report Type: Spontaneous
  Country: US (occurrence: US)
  Receive Date: 20131202
  Receipt Date: 20140109
  Transmission Date: 20141002
  Serious: Yes (Hospitalization, Other)
  Sender: FDA-Public Use
  Company Number: US-JNJFOC-20131114937

PATIENT
  Age: 58 Year
  Sex: Female

DRUGS (3)
  1. LEVAQUIN [Suspect]
     Indication: SINUSITIS
     Route: 048
     Dates: start: 20101023, end: 20101023
  2. MINOCYCLINE HYDROCHLORIDE [Suspect]
     Indication: RHEUMATOID ARTHRITIS
     Dosage: MONDAY-WEDNESDAY-FRIDAY
     Route: 048
     Dates: start: 200809, end: 201010
  3. MINOCYCLINE HYDROCHLORIDE [Suspect]
     Indication: RHEUMATOID ARTHRITIS
     Route: 048

REACTIONS (8)
  - Nerve injury [Recovering/Resolving]
  - Pain in extremity [Recovering/Resolving]
  - Hypersensitivity [Unknown]
  - Antineutrophil cytoplasmic antibody increased [Unknown]
  - Rhabdomyolysis [Unknown]
  - Local swelling [Unknown]
  - Rash erythematous [Unknown]
  - Skin ulcer [Unknown]
